FAERS Safety Report 8136893-4 (Version None)
Quarter: 2012Q1

REPORT INFORMATION
  Report Type: 
  Country: None (occurrence: None)
  Receive Date: 20120214
  Receipt Date: 20120208
  Transmission Date: 20120608
  Serious: Yes (Hospitalization, Other)
  Sender: FDA-Public Use
  Company Number: PHEH2009US02154

PATIENT
  Sex: Male
  Weight: 60 kg

DRUGS (50)
  1. ZETIA [Concomitant]
  2. SUSTRATE [Concomitant]
  3. MOTRIN [Concomitant]
  4. DECADRON [Concomitant]
  5. SODIUM CHLORIDE [Concomitant]
  6. RAMIPRIL [Concomitant]
  7. VELCADE [Concomitant]
  8. KALETRA [Concomitant]
  9. ISENTRESS [Concomitant]
  10. COMPAZINE [Concomitant]
     Dosage: 10 MG, UNK
  11. RITONAVIR [Concomitant]
     Dosage: 100 MG, UNK
     Route: 048
  12. MELPHALAN HYDROCHLORIDE [Concomitant]
  13. ZERIT [Concomitant]
  14. NORVIR [Concomitant]
  15. DEXAMETHASONE [Concomitant]
     Dosage: UNK
     Dates: end: 20010901
  16. BIAXIN [Concomitant]
  17. ARMODAFINIL [Concomitant]
     Dosage: 200 MG, UNK
     Route: 048
  18. ROCEPHIN [Concomitant]
  19. LIPITOR [Concomitant]
  20. COUMADIN [Concomitant]
  21. BACTRIM [Concomitant]
  22. THALIDOMIDE [Concomitant]
  23. SUSTIVA [Concomitant]
  24. ADRIAMYCIN PFS [Concomitant]
     Dosage: UNK
     Dates: start: 20010901
  25. VIDEX [Concomitant]
  26. TOPROL-XL [Concomitant]
  27. VIDEX [Concomitant]
  28. DOXYCYCLINE [Concomitant]
  29. PREZISTA [Concomitant]
  30. VIRACEPT [Concomitant]
  31. VINCRISTINE [Concomitant]
     Dosage: UNK
     Dates: end: 20010901
  32. FLUMADINE [Concomitant]
  33. OXYCODONE HCL [Concomitant]
     Dosage: 5 MG, UNK
     Route: 048
  34. NEUPOGEN [Concomitant]
     Dosage: 480 MCG
  35. ZOMETA [Suspect]
     Dosage: UNK
     Dates: start: 20040101, end: 20040101
  36. TOBRADEX [Concomitant]
  37. VIREAD [Concomitant]
  38. REVLIMID [Concomitant]
     Dosage: 25 MG, UNK
  39. CIPROFLOXACIN [Concomitant]
     Dosage: 500 MG, BID
     Route: 048
  40. AREDIA [Suspect]
     Dates: start: 19950101, end: 20040101
  41. DEBROX [Concomitant]
  42. ACYCLOVIR [Concomitant]
     Dosage: 800 MG, BID
     Route: 048
  43. ATIVAN [Concomitant]
     Dosage: 0.5 MG, UNK
     Route: 048
  44. ONDANSETRON [Concomitant]
     Dosage: 8 MG, QD
     Route: 048
  45. RETROVIR [Concomitant]
  46. EPIVIR [Concomitant]
  47. TRUVADA [Concomitant]
  48. INTELENCE [Concomitant]
  49. COREG [Concomitant]
     Dosage: 6.25 MG, BID
     Route: 048
  50. OMEPRAZOLE [Concomitant]
     Dosage: 20 MG, UNK
     Route: 048

REACTIONS (69)
  - EJECTION FRACTION DECREASED [None]
  - NEPHROLITHIASIS [None]
  - SPINAL DISORDER [None]
  - HYPOACUSIS [None]
  - EAR PAIN [None]
  - ABDOMINAL PAIN [None]
  - MUSCULOSKELETAL CHEST PAIN [None]
  - WEIGHT DECREASED [None]
  - HYPOGAMMAGLOBULINAEMIA [None]
  - HYPOAESTHESIA [None]
  - PATELLOFEMORAL PAIN SYNDROME [None]
  - MUSCLE STRAIN [None]
  - PELVIC PAIN [None]
  - LIGHT CHAIN ANALYSIS INCREASED [None]
  - EUSTACHIAN TUBE DYSFUNCTION [None]
  - ALANINE AMINOTRANSFERASE INCREASED [None]
  - DIARRHOEA [None]
  - BURSITIS [None]
  - BONE LESION [None]
  - ABDOMINAL DISCOMFORT [None]
  - CERUMEN IMPACTION [None]
  - CYST [None]
  - HYPERTENSION [None]
  - RHINITIS ALLERGIC [None]
  - COUGH [None]
  - SINUSITIS [None]
  - DYSURIA [None]
  - NAUSEA [None]
  - VOMITING [None]
  - MUSCULOSKELETAL PAIN [None]
  - BONE INFARCTION [None]
  - DIABETIC KETOACIDOSIS [None]
  - BACK PAIN [None]
  - PROTEINURIA [None]
  - LEFT VENTRICULAR HYPERTROPHY [None]
  - METASTASES TO SPINE [None]
  - SPINAL COMPRESSION FRACTURE [None]
  - PALPITATIONS [None]
  - SPINAL OSTEOARTHRITIS [None]
  - LEFT VENTRICULAR DYSFUNCTION [None]
  - GINGIVAL PAIN [None]
  - SINUS TACHYCARDIA [None]
  - VENTRICULAR EXTRASYSTOLES [None]
  - LIGAMENT SPRAIN [None]
  - CONCOMITANT DISEASE PROGRESSION [None]
  - INTERVERTEBRAL DISC DEGENERATION [None]
  - BLOOD TRIGLYCERIDES INCREASED [None]
  - CONJUNCTIVITIS [None]
  - HEADACHE [None]
  - EAR DISCOMFORT [None]
  - ANAEMIA [None]
  - MARROW HYPERPLASIA [None]
  - CEREBRAL ATROPHY [None]
  - OSTEONECROSIS OF JAW [None]
  - PAIN IN JAW [None]
  - FACIAL PAIN [None]
  - TRIGGER FINGER [None]
  - GRANULOCYTOPENIA [None]
  - NEUROPATHY PERIPHERAL [None]
  - PAIN IN EXTREMITY [None]
  - CONSTIPATION [None]
  - METASTASES TO BONE [None]
  - OSTEONECROSIS [None]
  - MUSCLE SPASMS [None]
  - HORDEOLUM [None]
  - OSTEOPENIA [None]
  - HYPERGLYCAEMIA [None]
  - GLYCOSURIA [None]
  - ANXIETY [None]
